FAERS Safety Report 15212033 (Version 4)
Quarter: 2018Q3

REPORT INFORMATION
  Report Type: Spontaneous
  Country: FR (occurrence: FR)
  Receive Date: 20180730
  Receipt Date: 20180920
  Transmission Date: 20181010
  Serious: Yes (Death)
  Sender: FDA-Public Use
  Company Number: FR-ROCHE-2132694

PATIENT
  Age: 38 Year
  Sex: Female

DRUGS (21)
  1. MYCOPHENOLATE MOFETIL. [Suspect]
     Active Substance: MYCOPHENOLATE MOFETIL
     Indication: PROPHYLAXIS AGAINST TRANSPLANT REJECTION
  2. MYCOPHENOLATE MOFETIL. [Suspect]
     Active Substance: MYCOPHENOLATE MOFETIL
     Indication: IMMUNOSUPPRESSANT DRUG THERAPY
  3. SIROLIMUS. [Suspect]
     Active Substance: SIROLIMUS
     Indication: SKIN GRAFT
  4. TACROLIMUS. [Suspect]
     Active Substance: TACROLIMUS
     Indication: IMMUNOSUPPRESSANT DRUG THERAPY
  5. PREDNISONE. [Suspect]
     Active Substance: PREDNISONE
     Indication: PROPHYLAXIS AGAINST TRANSPLANT REJECTION
  6. ANTITHYMOCYTE IMMUNOGLOBULIN [Suspect]
     Active Substance: THYMOCYTE IMMUNE GLOBULIN NOS
     Indication: SKIN GRAFT
     Route: 065
  7. SIROLIMUS. [Suspect]
     Active Substance: SIROLIMUS
     Indication: IMMUNOSUPPRESSANT DRUG THERAPY
     Dosage: UNKNOWN
     Route: 065
  8. SIROLIMUS. [Suspect]
     Active Substance: SIROLIMUS
     Indication: IMMUNOSUPPRESSANT DRUG THERAPY
  9. MYCOPHENOLATE MOFETIL. [Suspect]
     Active Substance: MYCOPHENOLATE MOFETIL
     Indication: TRANSPLANT REJECTION
     Route: 065
  10. ANTITHYMOCYTE IMMUNOGLOBULIN [Suspect]
     Active Substance: THYMOCYTE IMMUNE GLOBULIN NOS
     Indication: IMMUNOSUPPRESSANT DRUG THERAPY
     Route: 065
  11. TACROLIMUS. [Suspect]
     Active Substance: TACROLIMUS
     Indication: SKIN GRAFT
  12. SOLIRIS [Suspect]
     Active Substance: ECULIZUMAB
     Indication: PROPHYLAXIS
     Dosage: START DATE: /APR/2015
     Route: 042
  13. MYCOPHENOLATE MOFETIL. [Suspect]
     Active Substance: MYCOPHENOLATE MOFETIL
     Indication: SKIN GRAFT
  14. TACROLIMUS. [Suspect]
     Active Substance: TACROLIMUS
     Indication: SKIN GRAFT REJECTION
     Route: 065
  15. TACROLIMUS. [Suspect]
     Active Substance: TACROLIMUS
     Indication: PROPHYLAXIS AGAINST TRANSPLANT REJECTION
  16. PREDNISONE. [Suspect]
     Active Substance: PREDNISONE
     Indication: IMMUNOSUPPRESSION
     Route: 065
  17. PREDNISONE. [Suspect]
     Active Substance: PREDNISONE
     Indication: IMMUNOSUPPRESSANT DRUG THERAPY
  18. SOLIRIS [Suspect]
     Active Substance: ECULIZUMAB
     Indication: SKIN GRAFT
     Route: 042
  19. SOLIRIS [Suspect]
     Active Substance: ECULIZUMAB
     Indication: TRANSPLANT REJECTION
  20. SOLIRIS [Suspect]
     Active Substance: ECULIZUMAB
     Indication: IMMUNOSUPPRESSANT DRUG THERAPY
  21. PREDNISONE. [Suspect]
     Active Substance: PREDNISONE
     Indication: SKIN GRAFT

REACTIONS (17)
  - Graft loss [Fatal]
  - Oedema [Fatal]
  - Necrosis [Fatal]
  - Soft tissue disorder [Fatal]
  - Small cell lung cancer [Fatal]
  - Dysarthria [Fatal]
  - Graft ischaemia [Fatal]
  - Rash maculo-papular [Fatal]
  - Dyskinesia [Fatal]
  - Product use in unapproved indication [Fatal]
  - Deformity [Fatal]
  - Reperfusion injury [Fatal]
  - Skin necrosis [Fatal]
  - Lung carcinoma cell type unspecified recurrent [Fatal]
  - Acute graft versus host disease in skin [Fatal]
  - Cyanosis [Fatal]
  - Graft thrombosis [Fatal]

NARRATIVE: CASE EVENT DATE: 201404
